FAERS Safety Report 5637769-4 (Version None)
Quarter: 2008Q1

REPORT INFORMATION
  Report Type: 
  Country: None (occurrence: None)
  Receive Date: 20080219
  Receipt Date: 20080207
  Transmission Date: 20080703
  Serious: Yes (Hospitalization)
  Sender: FDA-Public Use
  Company Number: MEDI-0006535

PATIENT
  Age: 4 Month
  Sex: Female

DRUGS (4)
  1. SYNAGIS [Suspect]
     Dates: start: 20071101, end: 20071205
  2. SYNAGIS [Suspect]
     Dates: start: 20071101
  3. SYNAGIS [Suspect]
     Dates: start: 20080104
  4. SYNAGIS [Suspect]

REACTIONS (5)
  - DEHYDRATION [None]
  - DIARRHOEA [None]
  - FEELING ABNORMAL [None]
  - LETHARGY [None]
  - VOMITING [None]
